FAERS Safety Report 8451954-8 (Version None)
Quarter: 2012Q2

REPORT INFORMATION
  Report Type: 
  Country: None (occurrence: None)
  Receive Date: 20120620
  Receipt Date: 20120327
  Transmission Date: 20120825
  Serious: No
  Sender: FDA-Public Use
  Company Number: US-VERTEX PHARMACEUTICALS INC.-AE-2012-004339

PATIENT
  Sex: Female
  Weight: 78.542 kg

DRUGS (5)
  1. INCIVEK [Suspect]
     Indication: HEPATITIS C
     Route: 048
     Dates: start: 20120301, end: 20120301
  2. DIOVAN [Concomitant]
  3. NORVASC [Concomitant]
  4. PEG-INTRON [Concomitant]
     Indication: HEPATITIS C
     Route: 058
     Dates: start: 20120301, end: 20120301
  5. RIBASPHERE [Concomitant]
     Indication: HEPATITIS C
     Route: 048
     Dates: start: 20120301, end: 20120301

REACTIONS (4)
  - BLOOD BILIRUBIN INCREASED [None]
  - VOMITING [None]
  - DEHYDRATION [None]
  - NAUSEA [None]
